FAERS Safety Report 7421929-6 (Version None)
Quarter: 2011Q2

REPORT INFORMATION
  Report Type: 
  Country: None (occurrence: None)
  Receive Date: 20110418
  Receipt Date: 20110411
  Transmission Date: 20111010
  Serious: Yes (Hospitalization)
  Sender: FDA-Public Use
  Company Number: FR-B.I. PHARMACEUTICALS,INC./RIDGEFIELD-2011-FF-00387FF

PATIENT
  Sex: Male

DRUGS (1)
  1. SIFROL [Suspect]
     Route: 048

REACTIONS (2)
  - HYPERSEXUALITY [None]
  - IMPULSE-CONTROL DISORDER [None]
